FAERS Safety Report 10866129 (Version 1)
Quarter: 2015Q1

REPORT INFORMATION
  Report Type: Spontaneous
  Country: US (occurrence: None)
  Receive Date: 20150220
  Receipt Date: 20150220
  Transmission Date: 20150721
  Serious: Yes (Other)
  Sender: FDA-Public Use
  Company Number: None

PATIENT
  Age: 55 Year
  Sex: Female
  Weight: 58.97 kg

DRUGS (3)
  1. LEVETIRACETAM. [Suspect]
     Active Substance: LEVETIRACETAM
  2. CARBAMAZEPINE TARO [Suspect]
     Active Substance: CARBAMAZEPINE
     Indication: SEIZURE
     Dosage: 2 PILLS IN THE MRNG. 2 PILL AT NIGHT, MOUTH
     Dates: start: 200609, end: 201412
  3. GINKO BILOBA [Suspect]
     Active Substance: GINKGO

REACTIONS (4)
  - Amnesia [None]
  - Hallucination, visual [None]
  - Weight decreased [None]
  - Decreased appetite [None]

NARRATIVE: CASE EVENT DATE: 201410
